FAERS Safety Report 10156517 (Version 1)
Quarter: 2014Q2

REPORT INFORMATION
  Report Type: Spontaneous
  Country: US (occurrence: US)
  Receive Date: 20140507
  Receipt Date: 20140507
  Transmission Date: 20141212
  Serious: Yes (Other)
  Sender: FDA-Public Use
  Company Number: US-ASTRAZENECA-2014SE29811

PATIENT
  Sex: Male

DRUGS (2)
  1. BRILINTA [Suspect]
     Indication: STENT PLACEMENT
     Route: 048
  2. PLAVIX [Concomitant]

REACTIONS (2)
  - Device occlusion [Not Recovered/Not Resolved]
  - No therapeutic response [Not Recovered/Not Resolved]
